FAERS Safety Report 8533875-5 (Version None)
Quarter: 2012Q3

REPORT INFORMATION
  Report Type: 
  Country: None (occurrence: None)
  Receive Date: 20120724
  Receipt Date: 20120713
  Transmission Date: 20120928
  Serious: Yes (Hospitalization, Other)
  Sender: FDA-Public Use
  Company Number: FR-ROCHE-1086206

PATIENT
  Age: 50 Year
  Sex: Female
  Weight: 54 kg

DRUGS (6)
  1. MABTHERA [Suspect]
     Indication: RHEUMATOID ARTHRITIS
     Dosage: 2INFUSIONS 15 DAYS APART
     Route: 042
     Dates: start: 20110801
  2. MABTHERA [Suspect]
     Dosage: 2 INFUSIONS 15 DAYS APART
     Dates: start: 20120301
  3. COLCHICINE [Concomitant]
     Indication: PERICARDIAL EFFUSION
  4. METHAMPHETAMINE HYDROCHLORIDE [Concomitant]
     Indication: RHEUMATOID ARTHRITIS
     Dates: start: 20091101
  5. CELEBREX [Concomitant]
     Indication: RHEUMATOID ARTHRITIS
     Route: 048
     Dates: start: 20040101
  6. FOLIC ACID [Concomitant]

REACTIONS (1)
  - CARDIAC TAMPONADE [None]
